FAERS Safety Report 5815118-6 (Version None)
Quarter: 2008Q3

REPORT INFORMATION
  Report Type: 
  Country: None (occurrence: None)
  Receive Date: 20080718
  Receipt Date: 20080710
  Transmission Date: 20090109
  Serious: Yes (Death)
  Sender: FDA-Public Use
  Company Number: JP-MERCK-0807USA00390

PATIENT
  Age: 86 Year
  Sex: Male

DRUGS (7)
  1. PRIMAXIN [Suspect]
     Indication: SEPSIS
     Route: 042
     Dates: start: 20080618, end: 20080623
  2. PEPCID [Suspect]
     Route: 042
     Dates: start: 20080417, end: 20080617
  3. PREDONINE [Concomitant]
     Route: 042
     Dates: start: 20080417, end: 20080630
  4. ADONA [Concomitant]
     Indication: HAEMOSTASIS
     Route: 042
     Dates: start: 20080617, end: 20080630
  5. TRANSAMIN [Concomitant]
     Indication: HAEMOSTASIS
     Route: 042
     Dates: start: 20080617, end: 20080630
  6. OMEPRAL [Concomitant]
     Route: 042
     Dates: start: 20080617, end: 20080630
  7. BFLUID [Concomitant]
     Indication: FLUID REPLACEMENT
     Route: 042
     Dates: start: 20080417, end: 20080630

REACTIONS (2)
  - PLATELET COUNT DECREASED [None]
  - SEPSIS [None]
